FAERS Safety Report 11825873 (Version 1)
Quarter: 2015Q4

REPORT INFORMATION
  Report Type: Spontaneous
  Country: US (occurrence: None)
  Receive Date: 20151210
  Receipt Date: 20151210
  Transmission Date: 20160305
  Serious: Yes (Other)
  Sender: FDA-Public Use
  Company Number: None

PATIENT
  Age: 45 Year
  Sex: Female

DRUGS (1)
  1. MULTIHANCE [Suspect]
     Active Substance: GADOBENATE DIMEGLUMINE
     Indication: NUCLEAR MAGNETIC RESONANCE IMAGING BRAIN
     Route: 042
     Dates: start: 20151207, end: 20151207

REACTIONS (6)
  - Hyperventilation [None]
  - Paraesthesia [None]
  - Pharyngeal paraesthesia [None]
  - Pharyngeal hypoaesthesia [None]
  - Urticaria [None]
  - Eye swelling [None]

NARRATIVE: CASE EVENT DATE: 20151207
